FAERS Safety Report 9083581 (Version 1)
Quarter: 2013Q1

REPORT INFORMATION
  Report Type: Report from Study
  Country: US (occurrence: US)
  Receive Date: 20130131
  Receipt Date: 20130131
  Transmission Date: 20140127
  Serious: No
  Sender: FDA-Public Use
  Company Number: US-ABBOTT-12P-163-0995652-00

PATIENT
  Age: 74 Year
  Sex: Male

DRUGS (9)
  1. HUMIRA [Suspect]
     Indication: PSORIATIC ARTHROPATHY
  2. PRISTIQ [Concomitant]
     Indication: DEPRESSION
     Dosage: 100 MG DAILY
  3. BUPROPION HCL [Concomitant]
     Indication: DEPRESSION
     Dosage: 300 MG DAILY
  4. ALLOPURINOL [Concomitant]
     Indication: GOUT
     Dosage: 300 MG DAILY
  5. CRESTOR [Concomitant]
     Indication: BLOOD CHOLESTEROL INCREASED
     Dosage: 10 MG DAILY
  6. FINASTERIDE [Concomitant]
     Indication: PROSTATIC DISORDER
     Dosage: 5 MG DAILY
  7. LUMIGAN [Concomitant]
     Indication: GLAUCOMA
     Dosage: 1 DROP DAILY IN EACH EYE
     Route: 047
  8. LUMIGAN [Concomitant]
     Indication: INTRAOCULAR PRESSURE TEST
  9. UNKNOWN MULTIPLE VITAMINS [Concomitant]
     Indication: PRODUCT USED FOR UNKNOWN INDICATION

REACTIONS (5)
  - Dizziness [Not Recovered/Not Resolved]
  - Psoriasis [Not Recovered/Not Resolved]
  - Herpes zoster [Recovered/Resolved]
  - Arthralgia [Not Recovered/Not Resolved]
  - Bone erosion [Not Recovered/Not Resolved]
